FAERS Safety Report 7285554-2 (Version None)
Quarter: 2011Q1

REPORT INFORMATION
  Report Type: 
  Country: None (occurrence: None)
  Receive Date: 20110210
  Receipt Date: 20110131
  Transmission Date: 20110831
  Serious: Yes (Hospitalization)
  Sender: FDA-Public Use
  Company Number: KR-SANOFI-AVENTIS-2011SA006228

PATIENT
  Sex: Female

DRUGS (2)
  1. PREDNISONE [Concomitant]
     Indication: RHEUMATOID ARTHRITIS
     Route: 065
  2. HYDROXYCHLOROQUINE SULFATE [Suspect]
     Indication: RHEUMATOID ARTHRITIS
     Route: 065

REACTIONS (7)
  - HYPERTROPHIC CARDIOMYOPATHY [None]
  - SINUS ARREST [None]
  - SICK SINUS SYNDROME [None]
  - RIGHT VENTRICULAR DYSFUNCTION [None]
  - LEFT VENTRICULAR DYSFUNCTION [None]
  - CHEST DISCOMFORT [None]
  - GRAND MAL CONVULSION [None]
